FAERS Safety Report 4651661-3 (Version None)
Quarter: 2005Q2

REPORT INFORMATION
  Report Type: 
  Country: None (occurrence: None)
  Receive Date: 20050404
  Receipt Date: 20041102
  Transmission Date: 20051028
  Serious: No
  Sender: FDA-Public Use
  Company Number: USA041182912

PATIENT
  Age: 53 Year
  Sex: Female

DRUGS (7)
  1. CYMBALTA [Suspect]
     Indication: DEPRESSION
     Dosage: 30 MG DAY
     Dates: start: 20041029
  2. ZOLOFT [Concomitant]
  3. CELEBREX [Concomitant]
  4. NEURONTIN (GABAPENTIN PFIZER) [Concomitant]
  5. KADIAN [Concomitant]
  6. PERCOCET [Concomitant]
  7. AMBIEN [Concomitant]

REACTIONS (2)
  - DEPRESSION [None]
  - TREMOR [None]
